FAERS Safety Report 25051292 (Version 1)
Quarter: 2025Q1

REPORT INFORMATION
  Report Type: Spontaneous
  Country: CA (occurrence: CA)
  Receive Date: 20250307
  Receipt Date: 20250307
  Transmission Date: 20250408
  Serious: Yes (Death, Hospitalization)
  Sender: GLAXOSMITHKLINE
  Company Number: CA-GSK-CA2025AMR028213

PATIENT

DRUGS (1)
  1. ALBUTEROL [Suspect]
     Active Substance: ALBUTEROL
     Indication: Gene mutation
     Route: 048

REACTIONS (2)
  - Therapeutic product ineffective [Fatal]
  - Product use in unapproved indication [Unknown]
